FAERS Safety Report 16606797 (Version 5)
Quarter: 2019Q3

REPORT INFORMATION
  Report Type: Spontaneous
  Country: JP (occurrence: JP)
  Receive Date: 20190722
  Receipt Date: 20190910
  Transmission Date: 20191004
  Serious: Yes (Other)
  Sender: FDA-Public Use
  Company Number: JP-AMGEN-JPNSP2019115291

PATIENT
  Age: 72 Year
  Sex: Female
  Weight: 57 kg

DRUGS (4)
  1. ATORVASTATIN [Concomitant]
     Active Substance: ATORVASTATIN
     Dosage: 10 MILLIGRAM, QD
  2. EVENITY [Suspect]
     Active Substance: ROMOSOZUMAB-AQQG
     Indication: OSTEOPOROSIS
     Dosage: 210 MILLIGRAM, QMO
     Route: 058
     Dates: start: 20190417, end: 20190612
  3. THYRADIN-S [Concomitant]
     Active Substance: LEVOTHYROXINE
     Dosage: 25 MICROGRAM, QD
  4. ALSIODOL [Concomitant]
     Active Substance: ALFACALCIDOL
     Dosage: 1 MICROGRAM, QD
     Dates: start: 20190228

REACTIONS (1)
  - Transient ischaemic attack [Recovered/Resolved]

NARRATIVE: CASE EVENT DATE: 20190626
